FAERS Safety Report 8026094-2 (Version None)
Quarter: 2012Q1

REPORT INFORMATION
  Report Type: 
  Country: None (occurrence: None)
  Receive Date: 20120105
  Receipt Date: 20110607
  Transmission Date: 20120608
  Serious: No
  Sender: FDA-Public Use
  Company Number: US-ABBOTT-11P-163-0731215-00

PATIENT
  Sex: Female
  Weight: 44.946 kg

DRUGS (2)
  1. SYNTHROID [Suspect]
     Indication: HORMONE REPLACEMENT THERAPY
     Dates: start: 19810101
  2. ESTRACE [Suspect]
     Indication: HORMONE REPLACEMENT THERAPY

REACTIONS (2)
  - ABDOMINAL DISTENSION [None]
  - ABDOMINAL PAIN [None]
